FAERS Safety Report 21871784 (Version 1)
Quarter: 2023Q1

REPORT INFORMATION
  Report Type: Spontaneous
  Country: US (occurrence: US)
  Receive Date: 20230117
  Receipt Date: 20230117
  Transmission Date: 20230418
  Serious: Yes (Death, Hospitalization)
  Sender: FDA-Public Use
  Company Number: US-BAYER-2023A003639

PATIENT
  Age: 51 Year
  Sex: Female

DRUGS (19)
  1. NAPROXEN SODIUM [Suspect]
     Active Substance: NAPROXEN SODIUM
     Route: 048
  2. CITALOPRAM [Suspect]
     Active Substance: CITALOPRAM HYDROBROMIDE
  3. QUETIAPINE [Suspect]
     Active Substance: QUETIAPINE
  4. LITHIUM [Suspect]
     Active Substance: LITHIUM
  5. ISOSORBIDE [Suspect]
     Active Substance: ISOSORBIDE
  6. METFORMIN [Suspect]
     Active Substance: METFORMIN HYDROCHLORIDE
  7. MIRTAZAPINE [Suspect]
     Active Substance: MIRTAZAPINE
  8. FENOFIBRATE [Suspect]
     Active Substance: FENOFIBRATE
  9. FAMOTIDINE [Suspect]
     Active Substance: FAMOTIDINE
  10. FUROSEMIDE [Suspect]
     Active Substance: FUROSEMIDE
  11. LINACLOTIDE [Suspect]
     Active Substance: LINACLOTIDE
  12. MELATONIN [Suspect]
     Active Substance: MELATONIN
  13. SINGULAIR [Suspect]
     Active Substance: MONTELUKAST SODIUM
  14. PRAZOSIN [Suspect]
     Active Substance: PRAZOSIN
  15. ROPINIROLE [Suspect]
     Active Substance: ROPINIROLE
  16. ROSUVASTATIN [Suspect]
     Active Substance: ROSUVASTATIN
  17. VITAMIN D NOS [Suspect]
     Active Substance: VITAMIN D NOS
  18. BLACK COHOSH [Suspect]
     Active Substance: BLACK COHOSH
  19. .ALPHA.-TOCOPHEROL [Suspect]
     Active Substance: .ALPHA.-TOCOPHEROL

REACTIONS (2)
  - Completed suicide [Fatal]
  - Toxicity to various agents [Fatal]
